FAERS Safety Report 12057688 (Version 2)
Quarter: 2016Q1

REPORT INFORMATION
  Report Type: Spontaneous
  Country: GB (occurrence: GB)
  Receive Date: 20160210
  Receipt Date: 20160218
  Transmission Date: 20160526
  Serious: Yes (Hospitalization)
  Sender: FDA-Public Use
  Company Number: GB-BAUSCH-BL-2016-003257

PATIENT
  Age: 51 Year
  Sex: Male

DRUGS (6)
  1. MYFENAX [Suspect]
     Active Substance: MYCOPHENOLATE MOFETIL
     Indication: IMMUNOSUPPRESSION
     Route: 048
  2. PREDNISOLONE. [Suspect]
     Active Substance: PREDNISOLONE
     Indication: IMMUNOSUPPRESSION
     Route: 048
  3. ADOPORT [Suspect]
     Active Substance: TACROLIMUS
     Indication: IMMUNOSUPPRESSION
     Route: 048
  4. ADOPORT [Suspect]
     Active Substance: TACROLIMUS
     Route: 048
  5. ADOPORT [Suspect]
     Active Substance: TACROLIMUS
     Route: 048
  6. ADOPORT [Suspect]
     Active Substance: TACROLIMUS
     Route: 048

REACTIONS (1)
  - Cerebral disorder [Unknown]
